FAERS Safety Report 8226693-9 (Version None)
Quarter: 2012Q1

REPORT INFORMATION
  Report Type: 
  Country: None (occurrence: None)
  Receive Date: 20120322
  Receipt Date: 20120314
  Transmission Date: 20120608
  Serious: Yes (Hospitalization, Other)
  Sender: FDA-Public Use
  Company Number: US-BAYER-2011-063928

PATIENT
  Age: 19 Year
  Sex: Female
  Weight: 66.213 kg

DRUGS (3)
  1. YAZ [Suspect]
     Dosage: UNK
     Dates: start: 20080601, end: 20110301
  2. METRONIDAZOLE [Concomitant]
     Dosage: 500 MG, UNK
  3. DIFLUCAN [Concomitant]

REACTIONS (6)
  - CHOLECYSTITIS CHRONIC [None]
  - BILE DUCT STONE [None]
  - DEPRESSION [None]
  - CHOLECYSTECTOMY [None]
  - ABDOMINAL PAIN [None]
  - INSOMNIA [None]
